FAERS Safety Report 7942009-7 (Version None)
Quarter: 2011Q4

REPORT INFORMATION
  Report Type: 
  Country: None (occurrence: None)
  Receive Date: 20111122
  Receipt Date: 20111113
  Transmission Date: 20120403
  Serious: Yes (Life-Threatening)
  Sender: FDA-Public Use
  Company Number: JP-DEXPHARM-20111724

PATIENT
  Age: 47 Year
  Sex: Female

DRUGS (6)
  1. CHLORHEXIDINE GLUCONATE [Suspect]
  2. PROPOFOL [Concomitant]
  3. SEVOFLURANE [Concomitant]
  4. VECURONIUM BROMIDE [Concomitant]
  5. DIAZEPAM [Concomitant]
  6. MEPIVACAINE HCL [Concomitant]

REACTIONS (4)
  - ERYTHEMA [None]
  - TACHYCARDIA [None]
  - ANAPHYLACTIC SHOCK [None]
  - BRONCHOSPASM [None]
